FAERS Safety Report 11860264 (Version 1)
Quarter: 2015Q4

REPORT INFORMATION
  Report Type: Spontaneous
  Country: US (occurrence: US)
  Receive Date: 20151222
  Receipt Date: 20151222
  Transmission Date: 20160305
  Serious: Yes (Other)
  Sender: FDA-Public Use
  Company Number: US-PFIZER INC-2015453242

PATIENT
  Sex: Male

DRUGS (1)
  1. VIAGRA [Suspect]
     Active Substance: SILDENAFIL CITRATE
     Dosage: UNK

REACTIONS (6)
  - Drug ineffective [Unknown]
  - Spinal fracture [Unknown]
  - Depression [Unknown]
  - Cerebrovascular accident [Unknown]
  - Monoplegia [Unknown]
  - Memory impairment [Unknown]
